FAERS Safety Report 13458128 (Version 2)
Quarter: 2017Q2

REPORT INFORMATION
  Report Type: Spontaneous
  Country: GB (occurrence: GB)
  Receive Date: 20170419
  Receipt Date: 20170427
  Transmission Date: 20170830
  Serious: Yes (Death)
  Sender: FDA-Public Use
  Company Number: GB-MALLINCKRODT-T201701696

PATIENT
  Age: 20 Year
  Sex: Female
  Weight: 80 kg

DRUGS (27)
  1. ACETYLCYSTEINE. [Concomitant]
     Active Substance: ACETYLCYSTEINE
  2. AMILORIDE [Concomitant]
     Active Substance: AMILORIDE
  3. BUDESONIDE. [Concomitant]
     Active Substance: BUDESONIDE
  4. MAGNESIUM OXIDE. [Concomitant]
     Active Substance: MAGNESIUM OXIDE
  5. PHYTOMENADIONE [Concomitant]
     Active Substance: PHYTONADIONE
  6. UVADEX [Suspect]
     Active Substance: METHOXSALEN
     Indication: GRAFT VERSUS HOST DISEASE
     Dosage: UNK
     Route: 057
     Dates: start: 20161222, end: 20170203
  7. CEFALEXIN [Concomitant]
     Active Substance: CEPHALEXIN
  8. PHOSPHATE [Concomitant]
     Active Substance: UNSPECIFIED INGREDIENT
  9. POSACONAZOLE [Concomitant]
     Active Substance: POSACONAZOLE
  10. MEROPENEM. [Concomitant]
     Active Substance: MEROPENEM
  11. SANDO K [Concomitant]
  12. METOCLOPRAMIDE. [Concomitant]
     Active Substance: METOCLOPRAMIDE
  13. ACICLOVIR [Concomitant]
     Active Substance: ACYCLOVIR
  14. CALCICHEW [Concomitant]
     Active Substance: CALCIUM CARBONATE
  15. CASPOFUNGIN [Concomitant]
     Active Substance: CASPOFUNGIN
  16. CEFTAZIDIME. [Concomitant]
     Active Substance: CEFTAZIDIME
  17. RANITIDINE. [Concomitant]
     Active Substance: RANITIDINE
  18. OMEPRAZOLE. [Concomitant]
     Active Substance: OMEPRAZOLE
  19. PROBENECID. [Concomitant]
     Active Substance: PROBENECID
  20. TRANEXAMIC ACID. [Concomitant]
     Active Substance: TRANEXAMIC ACID
  21. ACETAMINOPHEN. [Concomitant]
     Active Substance: ACETAMINOPHEN
  22. FILGRASTIM [Concomitant]
     Active Substance: FILGRASTIM
  23. FUROSEMIDE. [Concomitant]
     Active Substance: FUROSEMIDE
  24. POTASSIUM CHLORIDE. [Concomitant]
     Active Substance: POTASSIUM CHLORIDE
  25. PREDNISOLONE. [Concomitant]
     Active Substance: PREDNISOLONE
  26. FOLIC ACID. [Concomitant]
     Active Substance: FOLIC ACID
  27. DIPROBASE [Concomitant]
     Active Substance: CHLOROCRESOL

REACTIONS (1)
  - Adenovirus infection [Fatal]

NARRATIVE: CASE EVENT DATE: 20170206
